FAERS Safety Report 25282214 (Version 1)
Quarter: 2025Q2

REPORT INFORMATION
  Report Type: Report from Study
  Country: NL (occurrence: NL)
  Receive Date: 20250508
  Receipt Date: 20250508
  Transmission Date: 20250716
  Serious: Yes (Death, Disabling, Other)
  Sender: AUROBINDO
  Company Number: NL-UCBSA-2016031194

PATIENT

DRUGS (1)
  1. LEVETIRACETAM [Suspect]
     Active Substance: LEVETIRACETAM
     Indication: Status epilepticus
     Route: 065

REACTIONS (4)
  - Death [Fatal]
  - Disability [Unknown]
  - Coma [Unknown]
  - Off label use [Unknown]
